FAERS Safety Report 4494054-4 (Version None)
Quarter: 2004Q4

REPORT INFORMATION
  Report Type: 
  Country: None (occurrence: None)
  Receive Date: 20041102
  Receipt Date: 20041020
  Transmission Date: 20050328
  Serious: Yes (Congenital Anomaly)
  Sender: FDA-Public Use
  Company Number: GBS041015794

PATIENT
  Sex: Male

DRUGS (3)
  1. FLUOXETINE HCL [Suspect]
     Dates: start: 20040101
  2. EFFEXOR XR [Concomitant]
  3. VALPROATE SODIUM [Concomitant]

REACTIONS (2)
  - DRUG EXPOSURE DURING PREGNANCY [None]
  - SPINA BIFIDA [None]
